FAERS Safety Report 15807804 (Version 3)
Quarter: 2019Q2

REPORT INFORMATION
  Report Type: Spontaneous
  Country: CA (occurrence: CA)
  Receive Date: 20190110
  Receipt Date: 20190523
  Transmission Date: 20190711
  Serious: Yes (Other)
  Sender: FDA-Public Use
  Company Number: CA-PFIZER INC-2019011807

PATIENT
  Age: 59 Year
  Sex: Female

DRUGS (1)
  1. PANTOPRAZOLE [Suspect]
     Active Substance: PANTOPRAZOLE
     Indication: INSOMNIA
     Dosage: 40 MG, 2X/DAY
     Route: 048

REACTIONS (4)
  - Drug ineffective [Unknown]
  - Off label use [Unknown]
  - Dyspepsia [Unknown]
  - Product use in unapproved indication [Unknown]
